FAERS Safety Report 17360997 (Version 3)
Quarter: 2024Q1

REPORT INFORMATION
  Report Type: Spontaneous
  Country: US (occurrence: US)
  Receive Date: 20200203
  Receipt Date: 20240118
  Transmission Date: 20240410
  Serious: Yes (Death, Other)
  Sender: FDA-Public Use
  Company Number: US-GILEAD-2020-0448773

PATIENT
  Age: 27 Year
  Sex: Female
  Weight: 68.039 kg

DRUGS (64)
  1. TRUVADA [Suspect]
     Active Substance: EMTRICITABINE\TENOFOVIR DISOPROXIL FUMARATE
     Indication: HIV infection
     Dosage: UNK
     Route: 048
     Dates: start: 2009
  2. TRUVADA [Suspect]
     Active Substance: EMTRICITABINE\TENOFOVIR DISOPROXIL FUMARATE
     Dosage: UNK
     Route: 048
     Dates: start: 20101008, end: 20110210
  3. TRUVADA [Suspect]
     Active Substance: EMTRICITABINE\TENOFOVIR DISOPROXIL FUMARATE
     Dosage: UNK
     Route: 048
     Dates: start: 20110517, end: 20120127
  4. TRUVADA [Suspect]
     Active Substance: EMTRICITABINE\TENOFOVIR DISOPROXIL FUMARATE
     Dosage: UNK
     Route: 048
     Dates: start: 20100208, end: 20100426
  5. ATRIPLA [Suspect]
     Active Substance: EFAVIRENZ\EMTRICITABINE\TENOFOVIR DISOPROXIL FUMARATE
     Indication: HIV infection
     Dosage: UNK
     Route: 048
     Dates: start: 20100329, end: 20110210
  6. VIREAD [Suspect]
     Active Substance: TENOFOVIR DISOPROXIL FUMARATE
     Indication: HIV infection
     Dosage: UNK
     Route: 048
     Dates: start: 20150210, end: 201608
  7. VIREAD [Suspect]
     Active Substance: TENOFOVIR DISOPROXIL FUMARATE
     Dosage: UNK
     Route: 048
     Dates: start: 20180917, end: 20190917
  8. VIREAD [Suspect]
     Active Substance: TENOFOVIR DISOPROXIL FUMARATE
     Dosage: UNK
     Route: 048
     Dates: start: 20200227, end: 20230416
  9. VIREAD [Suspect]
     Active Substance: TENOFOVIR DISOPROXIL FUMARATE
     Dosage: UNK
     Route: 048
     Dates: start: 201709, end: 20190917
  10. EMTRIVA [Concomitant]
     Active Substance: EMTRICITABINE
  11. NORVIR [Concomitant]
     Active Substance: RITONAVIR
  12. PREZISTA [Concomitant]
     Active Substance: DARUNAVIR ETHANOLATE
  13. REYATAZ [Concomitant]
     Active Substance: ATAZANAVIR SULFATE
  14. SUSTIVA [Concomitant]
     Active Substance: EFAVIRENZ
  15. TIVICAY [Concomitant]
     Active Substance: DOLUTEGRAVIR SODIUM
  16. ZIAGEN [Concomitant]
     Active Substance: ABACAVIR SULFATE
  17. ALBUTEROL [Concomitant]
     Active Substance: ALBUTEROL
  18. AMLODIPINE [Concomitant]
     Active Substance: AMLODIPINE BESYLATE
  19. METOPROLOL [Concomitant]
     Active Substance: METOPROLOL
  20. APIXABAN [Concomitant]
     Active Substance: APIXABAN
     Dosage: UNK
     Dates: start: 20181115, end: 20230416
  21. CLONIDINE [Concomitant]
     Active Substance: CLONIDINE
  22. DIPHENHYDRAMINE [Concomitant]
     Active Substance: DIPHENHYDRAMINE
  23. FLAGYL [Concomitant]
     Active Substance: METRONIDAZOLE\METRONIDAZOLE HYDROCHLORIDE
  24. HEPARIN SODIUM [Concomitant]
     Active Substance: HEPARIN SODIUM
     Dosage: UNK
     Dates: start: 20151218, end: 20161216
  25. LIPITOR [Concomitant]
     Active Substance: ATORVASTATIN CALCIUM
     Dosage: UNK
  26. METHOCARBAMOL [Concomitant]
     Active Substance: METHOCARBAMOL
  27. CALCIUM CARBONATE [Concomitant]
     Active Substance: CALCIUM CARBONATE
  28. XANAX [Concomitant]
     Active Substance: ALPRAZOLAM
  29. CARVEDILOL [Concomitant]
     Active Substance: CARVEDILOL
  30. EPOETIN ALFA [Concomitant]
     Active Substance: ERYTHROPOIETIN
  31. HYDRALAZINE [Concomitant]
     Active Substance: HYDRALAZINE HYDROCHLORIDE
  32. LOSARTAN [Concomitant]
     Active Substance: LOSARTAN
  33. ADALAT CC [Concomitant]
     Active Substance: NIFEDIPINE
  34. AMOXICILLIN [Concomitant]
     Active Substance: AMOXICILLIN
  35. ELIQUIS [Concomitant]
     Active Substance: APIXABAN
     Dosage: UNK
     Dates: start: 20181115
  36. LORATADINE [Concomitant]
     Active Substance: LORATADINE
  37. COLACE [Concomitant]
     Active Substance: DOCUSATE SODIUM
  38. CLINDAMYCIN [Concomitant]
     Active Substance: CLINDAMYCIN
  39. COREG [Concomitant]
     Active Substance: CARVEDILOL
  40. DIFLUCAN [Concomitant]
     Active Substance: FLUCONAZOLE
  41. DOXYCYCLINE [Concomitant]
     Active Substance: DOXYCYCLINE
  42. DRISDOL [Concomitant]
     Active Substance: ERGOCALCIFEROL
  43. GUAIFENESIN [Concomitant]
     Active Substance: GUAIFENESIN
  44. LISINOPRIL [Concomitant]
     Active Substance: LISINOPRIL
  45. MEPRON [Concomitant]
     Active Substance: ATOVAQUONE
  46. METRONIDAZOLE [Concomitant]
     Active Substance: METRONIDAZOLE
  47. NICODERM CQ [Concomitant]
     Active Substance: NICOTINE
  48. NITROGLYCERIN [Concomitant]
     Active Substance: NITROGLYCERIN
  49. PREVACID [Concomitant]
     Active Substance: LANSOPRAZOLE
  50. PROTONIX [Concomitant]
     Active Substance: PANTOPRAZOLE SODIUM
  51. ROMYCIN [AZITHROMYCIN] [Concomitant]
  52. TYLENOL [Concomitant]
     Active Substance: ACETAMINOPHEN
  53. VALTREX [Concomitant]
     Active Substance: VALACYCLOVIR HYDROCHLORIDE
  54. ZITHROMAX [Concomitant]
     Active Substance: AZITHROMYCIN DIHYDRATE
  55. EPIVIR [Concomitant]
     Active Substance: LAMIVUDINE
  56. PREDNISONE [Concomitant]
     Active Substance: PREDNISONE
  57. GABAPENTIN [Concomitant]
     Active Substance: GABAPENTIN
  58. ATORVASTATIN [Concomitant]
     Active Substance: ATORVASTATIN
  59. ATOVAQUONE [Concomitant]
     Active Substance: ATOVAQUONE
  60. ONDANSETRON [Concomitant]
     Active Substance: ONDANSETRON
     Dosage: UNK
  61. DOXERCALCIFEROL [Concomitant]
     Active Substance: DOXERCALCIFEROL
     Dosage: UNK
  62. BACTRIM [Concomitant]
     Active Substance: SULFAMETHOXAZOLE\TRIMETHOPRIM
     Dosage: UNK
  63. CIPROFLOXACIN [Concomitant]
     Active Substance: CIPROFLOXACIN
     Dosage: UNK
  64. ACETAMINOPHEN\HYDROCODONE [Concomitant]
     Active Substance: ACETAMINOPHEN\HYDROCODONE
     Dosage: UNK

REACTIONS (19)
  - Death [Fatal]
  - End stage renal disease [Not Recovered/Not Resolved]
  - Thrombosis [Recovered/Resolved]
  - Chronic kidney disease [Unknown]
  - Acute kidney injury [Unknown]
  - Suicidal ideation [Not Recovered/Not Resolved]
  - Renal atrophy [Unknown]
  - Renal impairment [Not Recovered/Not Resolved]
  - Economic problem [Not Recovered/Not Resolved]
  - Anhedonia [Not Recovered/Not Resolved]
  - Emotional distress [Not Recovered/Not Resolved]
  - Crying [Not Recovered/Not Resolved]
  - Restlessness [Not Recovered/Not Resolved]
  - Helplessness [Not Recovered/Not Resolved]
  - Anxiety [Not Recovered/Not Resolved]
  - Pain [Not Recovered/Not Resolved]
  - Depression [Not Recovered/Not Resolved]
  - Gait disturbance [Unknown]
  - Asthenia [Unknown]

NARRATIVE: CASE EVENT DATE: 20130101
